FAERS Safety Report 10570891 (Version 2)
Quarter: 2014Q4

REPORT INFORMATION
  Report Type: Report from Study
  Country: FR (occurrence: FR)
  Receive Date: 20141107
  Receipt Date: 20141107
  Transmission Date: 20150529
  Serious: Yes (Life-Threatening, Hospitalization)
  Sender: FDA-Public Use
  Company Number: FR-ROCHE-1464129

PATIENT
  Age: 47 Year
  Sex: Female

DRUGS (5)
  1. PERTUZUMAB [Suspect]
     Active Substance: PERTUZUMAB
     Dosage: DATE OF LAST DOSE PRIOR TO SAE: 31/JUL/2014?MAINTENANCE DOSE
     Route: 042
     Dates: start: 20140109, end: 20140731
  2. TRASTUZUMAB [Suspect]
     Active Substance: TRASTUZUMAB
     Dosage: DATE OF LAST DOSE PRIOR TO SAE: 31/JUL/2014 (315 MG)?MAINTENANCE DOSE
     Route: 042
     Dates: start: 20140109, end: 20140731
  3. PERTUZUMAB [Suspect]
     Active Substance: PERTUZUMAB
     Indication: HER-2 POSITIVE BREAST CANCER
     Dosage: DAY 1 OF CYCLE 1 AS PER PROTOCOL? LOADING DOSE
     Route: 042
     Dates: start: 20131219, end: 20131219
  4. TRASTUZUMAB [Suspect]
     Active Substance: TRASTUZUMAB
     Indication: HER-2 POSITIVE BREAST CANCER
     Dosage: DAY 1 OF CYCLE 1 AS PER PROTOCOL?LOADING DOSE
     Route: 042
     Dates: start: 20131219, end: 20131219
  5. PACLITAXEL. [Suspect]
     Active Substance: PACLITAXEL
     Indication: HER-2 POSITIVE BREAST CANCER
     Dosage: DATE OF LAST DOSE PRIOR TO SAE ONSET: 24/JUN/2014
     Route: 065
     Dates: start: 20131219

REACTIONS (1)
  - Intracranial pressure increased [Recovered/Resolved]

NARRATIVE: CASE EVENT DATE: 20140812
